FAERS Safety Report 5876663-0 (Version None)
Quarter: 2008Q3

REPORT INFORMATION
  Report Type: 
  Country: None (occurrence: None)
  Receive Date: 20080908
  Receipt Date: 20080827
  Transmission Date: 20090109
  Serious: No
  Sender: FDA-Public Use
  Company Number: LIT-08-0013-W

PATIENT
  Age: 36 Week
  Sex: Female
  Weight: 2.27 kg

DRUGS (1)
  1. CITALOPRAM HYDROBROMIDE [Suspect]
     Indication: DEPRESSION
     Dosage: 40 MG DAILY

REACTIONS (9)
  - AGITATION NEONATAL [None]
  - APGAR SCORE LOW [None]
  - CONVULSION NEONATAL [None]
  - FEEDING DISORDER NEONATAL [None]
  - HYPERBILIRUBINAEMIA NEONATAL [None]
  - HYPERTONIA [None]
  - HYPOTONIA [None]
  - MATERNAL DRUGS AFFECTING FOETUS [None]
  - NEONATAL RESPIRATORY DISTRESS SYNDROME [None]
